FAERS Safety Report 5816522-2 (Version None)
Quarter: 2008Q3

REPORT INFORMATION
  Report Type: 
  Country: None (occurrence: None)
  Receive Date: 20080717
  Receipt Date: 20080717
  Transmission Date: 20090109
  Serious: No
  Sender: FDA-Public Use
  Company Number: None

PATIENT

DRUGS (1)
  1. HUMIRA [Suspect]
     Dosage: 40MG EVERY OTHER WEEK SQ
     Route: 058

REACTIONS (1)
  - DYSPNOEA [None]
